FAERS Safety Report 25719312 (Version 1)
Quarter: 2025Q3

REPORT INFORMATION
  Report Type: Spontaneous
  Country: US (occurrence: US)
  Receive Date: 20250824
  Receipt Date: 20250824
  Transmission Date: 20251020
  Serious: No
  Sender: JOHNSON AND JOHNSON
  Company Number: US-JNJFOC-20250826148

PATIENT
  Sex: Female

DRUGS (1)
  1. TREMFYA [Suspect]
     Active Substance: GUSELKUMAB
     Indication: Crohn^s disease
     Route: 058
     Dates: start: 20250818

REACTIONS (1)
  - Headache [Unknown]

NARRATIVE: CASE EVENT DATE: 20250818
